FAERS Safety Report 16341034 (Version 1)
Quarter: 2019Q2

REPORT INFORMATION
  Report Type: Spontaneous
  Country: JP (occurrence: JP)
  Receive Date: 20190522
  Receipt Date: 20190522
  Transmission Date: 20190711
  Serious: Yes (Other)
  Sender: FDA-Public Use
  Company Number: JP-ACCORD-128014

PATIENT
  Age: 80 Year
  Sex: Male
  Weight: 47.9 kg

DRUGS (4)
  1. PANITUMUMAB [Suspect]
     Active Substance: PANITUMUMAB
     Indication: COLON CANCER
     Dosage: 100% DOSE AT 21 DAYS?COMPLETED A TOTAL OF 35 CYCLES
  2. FLUOROURACIL. [Suspect]
     Active Substance: FLUOROURACIL
     Indication: COLON CANCER
     Dosage: 80%DOSE STARTED 7 DAYS LATER?COMPLETED A TOTAL OF 35 CYCLES
  3. FOLINIC ACID [Suspect]
     Active Substance: LEUCOVORIN
     Indication: COLON CANCER
     Dosage: 80%DOSE WAS STARTED 7 DAYS LATER?COMPLETED A TOTAL OF 35 CYCLES
  4. OXALIPLATIN. [Suspect]
     Active Substance: OXALIPLATIN
     Indication: COLON CANCER
     Dosage: 80%DOSE WAS STARTED 7 DAYS LATER?COMPLETED A TOTAL OF 35 CYCLES

REACTIONS (3)
  - Cholangitis [Unknown]
  - Device related infection [Unknown]
  - Rash [Unknown]
